FAERS Safety Report 24741589 (Version 1)
Quarter: 2024Q4

REPORT INFORMATION
  Report Type: Spontaneous
  Country: GB (occurrence: GB)
  Receive Date: 20241217
  Receipt Date: 20241217
  Transmission Date: 20250114
  Serious: Yes (Other)
  Sender: TEVA
  Company Number: None

PATIENT
  Age: 66 Year
  Sex: Female
  Weight: 64 kg

DRUGS (1)
  1. ROPINIROLE [Suspect]
     Active Substance: ROPINIROLE
     Indication: Restless legs syndrome
     Dosage: 3MG
     Route: 065
     Dates: start: 20230920

REACTIONS (1)
  - Restless leg augmentation syndrome [Not Recovered/Not Resolved]

NARRATIVE: CASE EVENT DATE: 20240201
